FAERS Safety Report 23787124 (Version 7)
Quarter: 2024Q3

REPORT INFORMATION
  Report Type: Spontaneous
  Country: US (occurrence: US)
  Receive Date: 20240426
  Receipt Date: 20240712
  Transmission Date: 20241016
  Serious: Yes (Hospitalization, Other)
  Sender: RANBAXY
  Company Number: US-SUN PHARMACEUTICAL INDUSTRIES LTD-2024R1-433831

PATIENT
  Sex: Male
  Weight: 85.261 kg

DRUGS (10)
  1. EPOPROSTENOL [Suspect]
     Active Substance: EPOPROSTENOL
     Indication: Pulmonary arterial hypertension
     Dosage: 40 NG PER KG PER MIN
     Route: 042
     Dates: start: 20240123
  2. EPOPROSTENOL [Suspect]
     Active Substance: EPOPROSTENOL
     Dosage: 40 NG/KG/MIN, CONTINUOUS
     Route: 042
  3. EPOPROSTENOL [Suspect]
     Active Substance: EPOPROSTENOL
     Dosage: 40 NG PER KG PER MIN
     Route: 042
     Dates: start: 20240123
  4. EPOPROSTENOL [Suspect]
     Active Substance: EPOPROSTENOL
     Dosage: 40 NG/KG/MIN
     Route: 042
     Dates: start: 20240123
  5. WINREVAIR [Suspect]
     Active Substance: SOTATERCEPT-CSRK
     Indication: Product used for unknown indication
     Dosage: 45 MILLIGRAM
     Route: 058
  6. ADEMPAS [Concomitant]
     Active Substance: RIOCIGUAT
     Indication: Product used for unknown indication
     Dosage: UNK
     Route: 065
  7. ELIQUIS [Concomitant]
     Active Substance: APIXABAN
     Indication: Product used for unknown indication
     Dosage: UNK
     Route: 065
  8. OPSUMIT [Concomitant]
     Active Substance: MACITENTAN
     Indication: Product used for unknown indication
     Dosage: UNK
     Route: 065
  9. VELETRI [Concomitant]
     Active Substance: EPOPROSTENOL
     Indication: Product used for unknown indication
     Dosage: UNK
     Route: 065
  10. WARFARIN [Concomitant]
     Active Substance: WARFARIN
     Indication: Product used for unknown indication
     Route: 065

REACTIONS (12)
  - Oxygen saturation decreased [Unknown]
  - Complication associated with device [Unknown]
  - Haemorrhage [Unknown]
  - Nausea [Unknown]
  - Diarrhoea [Unknown]
  - Pain in jaw [Unknown]
  - Hypersensitivity [Unknown]
  - Abdominal pain upper [Unknown]
  - Erythema [Unknown]
  - Somnolence [Unknown]
  - Fatigue [Unknown]
  - Pallor [Unknown]
